FAERS Safety Report 4375001-2 (Version None)
Quarter: 2004Q2

REPORT INFORMATION
  Report Type: 
  Country: None (occurrence: None)
  Receive Date: 20040604
  Receipt Date: 20040527
  Transmission Date: 20050107
  Serious: Yes (Death)
  Sender: FDA-Public Use
  Company Number: F01200401248

PATIENT
  Age: 54 Year
  Sex: Male

DRUGS (3)
  1. OXALIPLATIN [Suspect]
     Indication: COLORECTAL CANCER METASTATIC
     Dosage: 285 MG Q3W, INTRAVENOUS NOS
     Route: 042
     Dates: start: 20040505, end: 20040505
  2. (CAPECITABINE) - TABLET - 1000 MG/M2 [Suspect]
     Dosage: 2300 MG (1000 MG/M2 TWICE DAILY FROM D1 TO D15 ORAL
     Route: 048
     Dates: start: 20040505, end: 20040513
  3. (BEVACIZUMAB) - SOLUTION - 7.5 MG/KG [Suspect]
     Dosage: 7.5 MG/KG Q3W INTRAVENOUS NOS
     Route: 042
     Dates: start: 20040505, end: 20040505

REACTIONS (1)
  - SUDDEN DEATH [None]
